FAERS Safety Report 9363719 (Version 2)
Quarter: 2013Q3

REPORT INFORMATION
  Report Type: Spontaneous
  Country: US (occurrence: US)
  Receive Date: 20130624
  Receipt Date: 20130821
  Transmission Date: 20140515
  Serious: Yes (Hospitalization)
  Sender: FDA-Public Use
  Company Number: US-009507513-1306USA009211

PATIENT
  Age: 59 Year
  Sex: Male

DRUGS (5)
  1. VICTRELIS [Suspect]
     Dosage: 800 MG, Q8H
     Route: 048
     Dates: start: 20130213
  2. PEGASYS [Suspect]
     Indication: HEPATITIS C
     Dosage: 180 MICROGRAM, QW
     Route: 058
     Dates: start: 20130115
  3. RIBAVIRIN (KADMON) [Suspect]
     Indication: HEPATITIS C
     Dosage: 600 MG, BID
     Route: 048
     Dates: start: 20130213
  4. TUMS [Concomitant]
     Dosage: UNK, PRN
     Dates: start: 20130130
  5. RIBAVIRIN (ZYDUS) [Concomitant]
     Dosage: 600 MG, BID
     Route: 048
     Dates: start: 20130115, end: 20130212

REACTIONS (3)
  - Blood pressure decreased [Recovered/Resolved]
  - Chest pain [Recovered/Resolved]
  - Syncope [Recovered/Resolved]
